FAERS Safety Report 5695591-7 (Version None)
Quarter: 2008Q2

REPORT INFORMATION
  Report Type: 
  Country: None (occurrence: None)
  Receive Date: 20080407
  Receipt Date: 20080307
  Transmission Date: 20081010
  Serious: No
  Sender: FDA-Public Use
  Company Number: PR-BAYER-200817273NA

PATIENT
  Age: 82 Year
  Sex: Female

DRUGS (2)
  1. AVELOX [Suspect]
     Indication: CHRONIC OBSTRUCTIVE PULMONARY DISEASE
     Dosage: TOTAL DAILY DOSE: 400 MG  UNIT DOSE: 400 MG
     Route: 048
     Dates: start: 20080306
  2. XOPENEX [Concomitant]

REACTIONS (4)
  - HEADACHE [None]
  - NAUSEA [None]
  - TREMOR [None]
  - VOMITING [None]
